FAERS Safety Report 11791746 (Version 11)
Quarter: 2017Q1

REPORT INFORMATION
  Report Type: Report from Study
  Country: CO (occurrence: CO)
  Receive Date: 20151201
  Receipt Date: 20170221
  Transmission Date: 20170428
  Serious: Yes (Hospitalization, Other)
  Sender: FDA-Public Use
  Company Number: PHHY2015CO155736

PATIENT
  Age: 65 Year
  Sex: Female
  Weight: 86 kg

DRUGS (10)
  1. REVOLADE [Suspect]
     Active Substance: ELTROMBOPAG
     Indication: IMMUNE THROMBOCYTOPENIC PURPURA
     Dosage: 25 MG, QD
     Route: 048
     Dates: start: 20150314
  2. REVOLADE [Suspect]
     Active Substance: ELTROMBOPAG
     Dosage: 25 MG, QD
     Route: 048
     Dates: start: 20160902, end: 20161109
  3. ATORVASTATIN [Concomitant]
     Active Substance: ATORVASTATIN
     Indication: BLOOD CHOLESTEROL ABNORMAL
     Dosage: 20 MG, QD
     Route: 048
  4. SYNDOL                             /00327201/ [Concomitant]
     Indication: PRODUCT USED FOR UNKNOWN INDICATION
     Dosage: UNK
     Route: 065
  5. REVOLADE [Suspect]
     Active Substance: ELTROMBOPAG
     Dosage: 1 DF (25 MG), QOD (HALF TABLET EVERY OTHER DAY)
     Route: 048
  6. ENALAPRIL [Concomitant]
     Active Substance: ENALAPRIL
     Indication: HYPERTENSION
     Dosage: 20 MG, BID
     Route: 048
  7. REVOLADE [Suspect]
     Active Substance: ELTROMBOPAG
     Dosage: 50 MG, UNK (TOOK HALF DURING 15 DAYS/ TOOK HALF TABLET BY MEDICAL PRESCRIPTION)
     Route: 048
     Dates: end: 20160721
  8. REVOLADE [Suspect]
     Active Substance: ELTROMBOPAG
     Dosage: 1 DF (25 MG), QOD (ONE TABLET EVERY OTHER DAY)
     Route: 048
  9. TRIMEBUTINE [Concomitant]
     Active Substance: TRIMEBUTINE
     Indication: PRODUCT USED FOR UNKNOWN INDICATION
     Route: 065
  10. SERTRALINE [Concomitant]
     Active Substance: SERTRALINE HYDROCHLORIDE
     Indication: PRODUCT USED FOR UNKNOWN INDICATION
     Route: 065

REACTIONS (37)
  - Pain in extremity [Unknown]
  - Dyspnoea [Unknown]
  - Visual acuity reduced [Unknown]
  - Irritable bowel syndrome [Unknown]
  - Pain [Unknown]
  - Abdominal discomfort [Unknown]
  - Rash [Unknown]
  - Depression [Recovering/Resolving]
  - Heart rate increased [Unknown]
  - Mental disorder [Not Recovered/Not Resolved]
  - Body temperature fluctuation [Unknown]
  - Cervical spinal stenosis [Unknown]
  - Suicidal ideation [Unknown]
  - Asthenia [Unknown]
  - Somnolence [Unknown]
  - Malaise [Unknown]
  - Amnesia [Unknown]
  - Dizziness [Unknown]
  - Hyperhidrosis [Unknown]
  - Proctitis [Not Recovered/Not Resolved]
  - Insomnia [Not Recovered/Not Resolved]
  - Platelet count decreased [Unknown]
  - Drug dispensing error [Unknown]
  - Feeling cold [Unknown]
  - Homicidal ideation [Unknown]
  - Colitis [Unknown]
  - Off label use [Unknown]
  - Angina unstable [Unknown]
  - Vomiting [Recovered/Resolved]
  - Fall [Unknown]
  - Intestinal prolapse [Unknown]
  - Urinary tract infection [Recovered/Resolved]
  - Proctalgia [Unknown]
  - Haemorrhoids [Recovering/Resolving]
  - Anxiety [Recovering/Resolving]
  - Decreased appetite [Not Recovered/Not Resolved]
  - Blood pressure decreased [Not Recovered/Not Resolved]

NARRATIVE: CASE EVENT DATE: 20150329
